FAERS Safety Report 25108544 (Version 8)
Quarter: 2025Q2

REPORT INFORMATION
  Report Type: Report from Study
  Country: SE (occurrence: SE)
  Receive Date: 20250322
  Receipt Date: 20250515
  Transmission Date: 20250717
  Serious: Yes (Hospitalization, Other)
  Sender: ABBVIE
  Company Number: SE-ABBVIE-6173129

PATIENT
  Age: 71 Year
  Sex: Male

DRUGS (9)
  1. FOSCARBIDOPA\FOSLEVODOPA [Suspect]
     Active Substance: FOSCARBIDOPA\FOSLEVODOPA
     Indication: Parkinson^s disease
     Route: 058
     Dates: start: 20250210
  2. FOSCARBIDOPA\FOSLEVODOPA [Suspect]
     Active Substance: FOSCARBIDOPA\FOSLEVODOPA
     Route: 058
     Dates: end: 20250325
  3. FOSCARBIDOPA\FOSLEVODOPA [Suspect]
     Active Substance: FOSCARBIDOPA\FOSLEVODOPA
     Route: 058
     Dates: start: 2025
  4. MIDODRINE [Concomitant]
     Active Substance: MIDODRINE
     Indication: Product used for unknown indication
  5. SILDENAFIL [Concomitant]
     Active Substance: SILDENAFIL
     Indication: Erectile dysfunction
     Dates: start: 20240703
  6. ALPROSTADIL [Concomitant]
     Active Substance: ALPROSTADIL
     Indication: Erectile dysfunction
     Dates: start: 20240703
  7. ASPIRIN [Concomitant]
     Active Substance: ASPIRIN
     Indication: Thrombosis prophylaxis
     Route: 048
     Dates: start: 20231023
  8. ASPIRIN [Concomitant]
     Active Substance: ASPIRIN
     Indication: Thrombosis prophylaxis
     Route: 048
     Dates: start: 20231027
  9. Tadalafil 1A Farma [Concomitant]
     Indication: Erectile dysfunction
     Dates: start: 20230831

REACTIONS (20)
  - Oedema peripheral [Recovering/Resolving]
  - Blood pressure decreased [Recovered/Resolved]
  - Diarrhoea [Not Recovered/Not Resolved]
  - Infusion site haemorrhage [Recovered/Resolved]
  - Hypertension [Recovering/Resolving]
  - Infusion site nodule [Recovering/Resolving]
  - Fall [Recovered/Resolved]
  - Depressed level of consciousness [Recovered/Resolved]
  - Head injury [Recovered/Resolved]
  - Dyspnoea [Unknown]
  - Diarrhoea [Unknown]
  - Infusion site vesicles [Recovered/Resolved]
  - Peripheral swelling [Recovered/Resolved]
  - Constipation [Recovered/Resolved]
  - Blood pressure fluctuation [Recovering/Resolving]
  - Loss of consciousness [Unknown]
  - Pain [Recovered/Resolved]
  - Device issue [Unknown]
  - Blood pressure decreased [Recovered/Resolved]
  - Parkinson^s disease [Unknown]

NARRATIVE: CASE EVENT DATE: 20250101
